FAERS Safety Report 25270972 (Version 1)
Quarter: 2025Q2

REPORT INFORMATION
  Report Type: Report from Study
  Country: US (occurrence: US)
  Receive Date: 20250506
  Receipt Date: 20250506
  Transmission Date: 20250717
  Serious: Yes (Hospitalization, Other)
  Sender: AMNEAL
  Company Number: US-AMNEAL PHARMACEUTICALS-2024-AMRX-02242

PATIENT
  Age: 92 Year
  Sex: Male
  Weight: 73.469 kg

DRUGS (4)
  1. OPICAPONE [Suspect]
     Active Substance: OPICAPONE
     Indication: Parkinson^s disease
     Dosage: 50MG, 1 CAPSULE, DAILY
     Route: 048
     Dates: end: 20240617
  2. OPICAPONE [Suspect]
     Active Substance: OPICAPONE
     Dosage: 01 CAPSULES, DAILY AT BEDTIME AT LEAST 01 HOUR AFTER EATING
     Route: 048
  3. CARBIDOPA AND LEVODOPA [Concomitant]
     Active Substance: CARBIDOPA\LEVODOPA
     Indication: Product used for unknown indication
     Route: 065
  4. CARBIDOPA AND LEVODOPA [Concomitant]
     Active Substance: CARBIDOPA\LEVODOPA
     Route: 065

REACTIONS (4)
  - Hip fracture [Recovering/Resolving]
  - Fall [Unknown]
  - Tremor [Recovering/Resolving]
  - Product use issue [Unknown]

NARRATIVE: CASE EVENT DATE: 20250301
